FAERS Safety Report 7880095-3 (Version None)
Quarter: 2011Q4

REPORT INFORMATION
  Report Type: 
  Country: None (occurrence: None)
  Receive Date: 20111101
  Receipt Date: 20111024
  Transmission Date: 20120403
  Serious: Yes (Death, Other)
  Sender: FDA-Public Use
  Company Number: US-BAYER-200940654NA

PATIENT
  Age: 75 Year
  Sex: Male
  Weight: 54.422 kg

DRUGS (25)
  1. DOXAZOSIN MESYLATE [Concomitant]
     Dosage: 8 MG, QD
     Route: 048
  2. FOLIC ACID [Concomitant]
     Dosage: 1 DAILY
     Route: 048
  3. ISORDIL [Concomitant]
     Dosage: 30 MG, QD
     Route: 048
  4. RED BLOOD CELLS [Concomitant]
     Dosage: 1 UNIT
     Route: 042
     Dates: start: 20030630
  5. VITAMIN B-12 [Concomitant]
     Dosage: 1 DAILY
     Route: 048
  6. ALBUMIN [ALBUMEN] [Concomitant]
     Dosage: 12.5 GRAM
     Route: 042
  7. FENTANYL-100 [Concomitant]
     Dosage: UNK
     Dates: start: 20030630
  8. LASIX [Concomitant]
     Dosage: 40 MG, QD
     Route: 048
  9. CALTRATE + VITAMIN D [Concomitant]
     Dosage: 600 MG, BID
     Route: 048
  10. MAGNESIUM SULFATE [Concomitant]
     Dosage: 1.5 GRAMS
     Route: 042
  11. PLASMA [Concomitant]
     Dosage: 200 CC
     Route: 042
     Dates: start: 20030630
  12. PAVULON [Concomitant]
  13. MILRINONE [Concomitant]
  14. DIPRIVAN [Concomitant]
  15. XYLO [Concomitant]
  16. TRASYLOL [Suspect]
     Indication: CORONARY ARTERY BYPASS
     Dosage: 100CC LOADING DOSE FOLLOWED BY 50 CC/HOUR INFUSION-LOADING DOSE.
     Route: 042
     Dates: start: 20030630, end: 20030630
  17. VERELAN [Concomitant]
     Dosage: 300 MG, BID
     Route: 048
  18. TYLENOL PM [Concomitant]
     Dosage: 6 TIMES PER WEEK
     Route: 048
  19. HEPARIN [Concomitant]
     Dosage: 26, 800 UNITS
     Route: 042
  20. NIPRIDE [Concomitant]
  21. VERSED [Concomitant]
     Dosage: 5 MG
     Route: 042
  22. NEOSTIGMINE [Concomitant]
     Dosage: 0.5 MG/ML
     Route: 042
  23. SODIUM BICARBONATE [Concomitant]
     Dosage: 100 MILLEQUIVILANT
     Route: 042
  24. FERROUS SULFATE TAB [Concomitant]
     Dosage: 1 DAILY
     Route: 048
  25. PROTAMINE SULFATE [Concomitant]
     Route: 042

REACTIONS (13)
  - UNEVALUABLE EVENT [None]
  - PAIN [None]
  - MULTI-ORGAN FAILURE [None]
  - FEAR [None]
  - ANHEDONIA [None]
  - RENAL IMPAIRMENT [None]
  - EMOTIONAL DISTRESS [None]
  - RENAL FAILURE [None]
  - INJURY [None]
  - DEATH [None]
  - RENAL INJURY [None]
  - STRESS [None]
  - ANXIETY [None]
